FAERS Safety Report 8262098-2 (Version None)
Quarter: 2012Q2

REPORT INFORMATION
  Report Type: 
  Country: None (occurrence: None)
  Receive Date: 20120405
  Receipt Date: 20120329
  Transmission Date: 20120825
  Serious: Yes (Other)
  Sender: FDA-Public Use
  Company Number: PHHY2012FR028885

PATIENT
  Sex: Male

DRUGS (1)
  1. PARLODEL [Suspect]
     Indication: PARKINSON'S DISEASE
     Dosage: 40 MG, DAILY
     Route: 048
     Dates: start: 20010101

REACTIONS (4)
  - SOMNOLENCE [None]
  - IMPULSE-CONTROL DISORDER [None]
  - EATING DISORDER [None]
  - PSYCHOMOTOR HYPERACTIVITY [None]
